FAERS Safety Report 14539019 (Version 4)
Quarter: 2018Q1

REPORT INFORMATION
  Report Type: Spontaneous
  Country: FI (occurrence: FI)
  Receive Date: 20180216
  Receipt Date: 20180316
  Transmission Date: 20180509
  Serious: Yes (Other)
  Sender: FDA-Public Use
  Company Number: FI-VIFOR (INTERNATIONAL) INC.-VIT-2018-01487

PATIENT
  Age: 50 Year
  Sex: Male

DRUGS (4)
  1. MIRCERA [Suspect]
     Active Substance: METHOXY POLYETHYLENE GLYCOL-EPOETIN BETA
     Indication: CONGENITAL CYSTIC KIDNEY DISEASE
     Dosage: FIRST DOSE
     Route: 065
     Dates: start: 20171107
  2. MIRCERA [Suspect]
     Active Substance: METHOXY POLYETHYLENE GLYCOL-EPOETIN BETA
     Dosage: SECOND DOSE
     Route: 065
     Dates: start: 20180116
  3. MAREVAN [Concomitant]
     Active Substance: WARFARIN SODIUM
     Dates: start: 20171106, end: 20180126
  4. APURIN [Suspect]
     Active Substance: ALLOPURINOL
     Indication: PRODUCT USED FOR UNKNOWN INDICATION
     Route: 065
     Dates: start: 20171006, end: 20171215

REACTIONS (3)
  - Drug ineffective [Unknown]
  - Thrombocytopenia [Not Recovered/Not Resolved]
  - Off label use [Unknown]

NARRATIVE: CASE EVENT DATE: 20171107
